FAERS Safety Report 5568641-6 (Version None)
Quarter: 2007Q4

REPORT INFORMATION
  Report Type: 
  Country: None (occurrence: None)
  Receive Date: 20071220
  Receipt Date: 20071212
  Transmission Date: 20080405
  Serious: Yes (Hospitalization)
  Sender: FDA-Public Use
  Company Number: PHBS2007JP18366

PATIENT
  Age: 33 Year
  Sex: Male

DRUGS (2)
  1. VOLTAREN [Suspect]
     Indication: INFLUENZA
     Dosage: 50 MG/DAY
     Route: 048
     Dates: start: 20070130, end: 20070202
  2. MUCODYNE [Concomitant]
     Indication: NASOPHARYNGITIS
     Dosage: 1500 MG/DAY
     Route: 048
     Dates: start: 20070130, end: 20070202

REACTIONS (16)
  - CHEILITIS [None]
  - CONJUNCTIVAL HYPERAEMIA [None]
  - CORNEAL EROSION [None]
  - DRY EYE [None]
  - DYSPHAGIA [None]
  - EYE PAIN [None]
  - LYMPHOCYTE STIMULATION TEST POSITIVE [None]
  - MUCOSAL EROSION [None]
  - MYCOPLASMA INFECTION [None]
  - MYCOPLASMA SEROLOGY POSITIVE [None]
  - ORAL MUCOSAL ERUPTION [None]
  - PHARYNGOLARYNGEAL PAIN [None]
  - PYREXIA [None]
  - RASH [None]
  - STEVENS-JOHNSON SYNDROME [None]
  - WHITE BLOOD CELL COUNT INCREASED [None]
